FAERS Safety Report 9611022 (Version 1)
Quarter: 2013Q4

REPORT INFORMATION
  Report Type: Spontaneous
  Country: FR (occurrence: FR)
  Receive Date: 20131009
  Receipt Date: 20131009
  Transmission Date: 20140711
  Serious: Yes (Hospitalization)
  Sender: FDA-Public Use
  Company Number: FR-GLAXOSMITHKLINE-B0926458A

PATIENT
  Age: 63 Year
  Sex: Male

DRUGS (5)
  1. ZELITREX [Suspect]
     Indication: PROPHYLAXIS
     Dosage: 500MG TWICE PER DAY
     Route: 048
     Dates: end: 201309
  2. NOXAFIL [Suspect]
     Indication: PROPHYLAXIS
     Route: 048
     Dates: start: 201209, end: 201209
  3. BACTRIM FORTE [Suspect]
     Indication: PROPHYLAXIS
     Dosage: 1TAB THREE TIMES PER WEEK
     Route: 048
     Dates: end: 201209
  4. CAMPATH [Suspect]
     Indication: CHRONIC LYMPHOCYTIC LEUKAEMIA
     Route: 042
     Dates: start: 201206, end: 201209
  5. KARDEGIC [Concomitant]
     Dosage: 75MG PER DAY
     Route: 048

REACTIONS (10)
  - Drug reaction with eosinophilia and systemic symptoms [Recovered/Resolved]
  - Rash [Recovered/Resolved]
  - Pruritus [Recovered/Resolved]
  - Skin exfoliation [Recovered/Resolved]
  - Lymphadenopathy [Recovered/Resolved]
  - Oedema peripheral [Recovered/Resolved]
  - Pharyngeal oedema [Recovered/Resolved]
  - Eosinophilia [Recovered/Resolved]
  - Scratch [Recovered/Resolved]
  - Eczema [Recovered/Resolved]
